FAERS Safety Report 8826491 (Version 1)
Quarter: 2012Q4

REPORT INFORMATION
  Report Type: 
  Country: US (occurrence: US)
  Receive Date: 20121005
  Receipt Date: 20121005
  Transmission Date: 20130627
  Serious: Yes (Other)
  Sender: FDA-Public Use
  Company Number: US-PFIZER INC-2012244868

PATIENT
  Sex: Male
  Weight: 79.37 kg

DRUGS (6)
  1. CHANTIX [Suspect]
     Indication: SMOKING CESSATION THERAPY
     Dosage: UNK
  2. SEROQUEL [Suspect]
     Indication: IRRITABILITY
     Dosage: 100 mg, daily
  3. SEROQUEL [Suspect]
     Indication: SLEEP DISORDER
  4. SEROQUEL [Suspect]
     Indication: AGITATION
  5. SULFADIAZINE SILVER [Concomitant]
     Indication: THERMAL BURN
     Dosage: UNK
  6. ACETYLSALICYLIC ACID [Concomitant]
     Dosage: UNK

REACTIONS (5)
  - Testis cancer [Unknown]
  - Agitation [Recovered/Resolved]
  - Nightmare [Recovered/Resolved]
  - Irritability [Recovered/Resolved]
  - Insomnia [Recovered/Resolved]
